FAERS Safety Report 4907876-X (Version None)
Quarter: 2006Q1

REPORT INFORMATION
  Report Type: 
  Country: None (occurrence: None)
  Receive Date: 20060208
  Receipt Date: 20060125
  Transmission Date: 20060701
  Serious: Yes (Hospitalization)
  Sender: FDA-Public Use
  Company Number: 2006P1000065

PATIENT
  Age: 67 Year
  Sex: Female
  Weight: 85 kg

DRUGS (7)
  1. RETEPLASE (RETEPLASE) [Suspect]
     Indication: ACUTE MYOCARDIAL INFARCTION
     Dosage: 5 IU;X1;IV
     Route: 042
     Dates: start: 20050405
  2. ABCIXIMAB (ABCIXIMAB) [Suspect]
     Dosage: 10 MG;X1;IV ; 4.0 ML;QH;IV
     Route: 042
     Dates: start: 20050405
  3. HEPARIN [Concomitant]
  4. ASPIRIN [Concomitant]
  5. BETA BLOCKER AGENTS [Concomitant]
  6. ACE INHIBITORS NOS [Concomitant]
  7. CHOLESTEROL- AND TRIGLYCERIDE REDUCERS [Concomitant]

REACTIONS (4)
  - BLOOD GLUCOSE DECREASED [None]
  - CORONARY ARTERY DISEASE [None]
  - EJECTION FRACTION DECREASED [None]
  - PUNCTURE SITE HAEMORRHAGE [None]
